FAERS Safety Report 17715435 (Version 2)
Quarter: 2021Q3

REPORT INFORMATION
  Report Type: Spontaneous
  Country: US (occurrence: US)
  Receive Date: 20200427
  Receipt Date: 20210817
  Transmission Date: 20211014
  Serious: Yes (Other)
  Sender: FDA-Public Use
  Company Number: US-TEVA-2020-US-1227409

PATIENT
  Age: 74 Year
  Sex: Male
  Weight: 70.37 kg

DRUGS (21)
  1. LOSARTAN. [Concomitant]
     Active Substance: LOSARTAN
     Dosage: ONE PER DAY
     Route: 048
  2. VALSARTAN. [Suspect]
     Active Substance: VALSARTAN
     Route: 048
  3. VALSARTAN. [Suspect]
     Active Substance: VALSARTAN
     Indication: HYPERTENSION
     Route: 048
  4. VITAMIN D [Concomitant]
     Active Substance: VITAMIN D NOS
     Dosage: ONGOING, DAILY
     Route: 048
     Dates: start: 2010
  5. VALSARTAN. [Suspect]
     Active Substance: VALSARTAN
     Route: 048
  6. VALSARTAN W/HYDROCHLOROTHIAZIDE [Suspect]
     Active Substance: HYDROCHLOROTHIAZIDE\VALSARTAN
     Indication: HYPERTENSION
     Dosage: DOSAGE: 160?25 MG
     Route: 048
     Dates: start: 20130409, end: 20130708
  7. VALSARTAN W/HYDROCHLOROTHIAZIDE [Suspect]
     Active Substance: HYDROCHLOROTHIAZIDE\VALSARTAN
     Dosage: DOSAGE: 160?25 MG
     Route: 048
     Dates: start: 20140912, end: 20170421
  8. VALSARTAN. [Suspect]
     Active Substance: VALSARTAN
     Route: 048
  9. VALSARTAN W/HYDROCHLOROTHIAZIDE [Suspect]
     Active Substance: HYDROCHLOROTHIAZIDE\VALSARTAN
     Dosage: DOSAGE:80?12.5 MG
     Route: 048
     Dates: start: 20131112, end: 20140814
  10. VALSARTAN W/HYDROCHLOROTHIAZIDE [Suspect]
     Active Substance: HYDROCHLOROTHIAZIDE\VALSARTAN
     Dosage: DOSAGE: 320/12.5 MG
     Route: 048
  11. VALSARTAN. [Suspect]
     Active Substance: VALSARTAN
     Indication: HYPERTENSION
     Route: 048
  12. VALSARTAN. [Suspect]
     Active Substance: VALSARTAN
     Route: 048
  13. VALSARTAN SOLCO/PRINSTON [Suspect]
     Active Substance: VALSARTAN
     Dosage: DOSAGE: 320 MG
     Route: 048
     Dates: start: 20170827, end: 20180604
  14. ASPIRIN. [Concomitant]
     Active Substance: ASPIRIN
     Indication: HYPERTENSION
     Dosage: ONGOING, ONCE A DAY
     Route: 048
  15. ATORVASTATIN [Concomitant]
     Active Substance: ATORVASTATIN
     Dosage: ONCE A DAY
     Route: 048
  16. MULTIVITAMINS [Concomitant]
     Active Substance: VITAMINS
     Dosage: ONGOING, DAILY
     Dates: start: 2000
  17. FISH OIL [Concomitant]
     Active Substance: FISH OIL
     Dosage: ONGOING, DAILY
     Route: 048
     Dates: start: 2010
  18. VALSARTAN SOLCO/PRINSTON [Suspect]
     Active Substance: VALSARTAN
     Indication: HYPERTENSION
     Dosage: DOSAGE: 320 MG
     Route: 048
     Dates: start: 20170214, end: 20170716
  19. VALSARTAN/HYDROCHLOROTHIAZIDE MYLAN [Suspect]
     Active Substance: HYDROCHLOROTHIAZIDE\VALSARTAN
     Indication: HYPERTENSION
     Dosage: DOSAGE: 80?12.5 MG
     Route: 048
     Dates: start: 20130821, end: 20131122
  20. DILTIAZEM ER [Concomitant]
     Active Substance: DILTIAZEM
     Dosage: TWO PER DAY
     Route: 065
  21. CARTIA XT [Concomitant]
     Active Substance: DILTIAZEM HYDROCHLORIDE
     Dosage: EXTENDED RELEASE 2 TIMES A DAY
     Route: 048

REACTIONS (3)
  - Bladder cancer [Unknown]
  - Staphylococcal infection [Unknown]
  - Haematuria [Recovered/Resolved]

NARRATIVE: CASE EVENT DATE: 201805
